FAERS Safety Report 11361300 (Version 1)
Quarter: 2015Q3

REPORT INFORMATION
  Report Type: Spontaneous
  Country: US (occurrence: US)
  Receive Date: 20150810
  Receipt Date: 20150810
  Transmission Date: 20151125
  Serious: Yes (Hospitalization, Other)
  Sender: FDA-Public Use
  Company Number: CHPA2015US009322

PATIENT
  Sex: Male

DRUGS (3)
  1. VOLTAREN [Suspect]
     Active Substance: DICLOFENAC SODIUM
     Indication: ARTHROPATHY
  2. VOLTAREN [Suspect]
     Active Substance: DICLOFENAC SODIUM
     Indication: MULTIPLE SYSTEM ATROPHY
     Dosage: LITTLE BIT, UNK
     Route: 061
     Dates: start: 2014
  3. VOLTAREN [Suspect]
     Active Substance: DICLOFENAC SODIUM
     Indication: MUSCULOSKELETAL STIFFNESS

REACTIONS (5)
  - Cerebral haemorrhage [Recovered/Resolved]
  - Drug administered at inappropriate site [Unknown]
  - Hypokinesia [Recovering/Resolving]
  - Therapeutic response unexpected [Unknown]
  - Coma [Recovered/Resolved]

NARRATIVE: CASE EVENT DATE: 2014
